FAERS Safety Report 16694060 (Version 1)
Quarter: 2019Q3

REPORT INFORMATION
  Report Type: Spontaneous
  Country: US (occurrence: US)
  Receive Date: 20190625
  Receipt Date: 20190625
  Transmission Date: 20191004
  Serious: Yes (Life-Threatening)
  Sender: FDA-Public Use
  Company Number: None

PATIENT
  Age: 74 Year
  Sex: Male

DRUGS (2)
  1. HYDROMORPHONE [Suspect]
     Active Substance: HYDROMORPHONE
     Route: 042
     Dates: start: 201904, end: 20190412
  2. NITROGLYCERIN. [Suspect]
     Active Substance: NITROGLYCERIN
     Dosage: ?          OTHER DOSE:1 TAB;?
     Route: 048
     Dates: start: 201904, end: 20190412

REACTIONS (1)
  - Cardio-respiratory arrest [None]

NARRATIVE: CASE EVENT DATE: 20190411
